FAERS Safety Report 16020426 (Version 1)
Quarter: 2019Q1

REPORT INFORMATION
  Report Type: Spontaneous
  Country: FR (occurrence: FR)
  Receive Date: 20190301
  Receipt Date: 20190301
  Transmission Date: 20190418
  Serious: Yes (Hospitalization, Other)
  Sender: FDA-Public Use
  Company Number: FR-AUROBINDO-AUR-APL-2019-009862

PATIENT

DRUGS (4)
  1. EFFERALGAN CODEINE [Suspect]
     Active Substance: ACETAMINOPHEN\CODEINE PHOSPHATE
     Indication: PAIN
     Dosage: 6 GRAM, ONCE A DAY
     Route: 048
     Dates: start: 20180711
  2. KALINOX [Suspect]
     Active Substance: NITROUS OXIDE\OXYGEN
     Indication: PAIN
     Dosage: 1 DOSAGE FORM, AS NECESSARY
     Route: 045
     Dates: start: 20181001
  3. ACUPAN [Suspect]
     Active Substance: NEFOPAM HYDROCHLORIDE
     Indication: PAIN
     Dosage: 32 MILLILITER, EVERY HOUR
     Route: 042
     Dates: start: 201812
  4. TRAMADOL. [Suspect]
     Active Substance: TRAMADOL
     Indication: PAIN
     Dosage: 1 DOSAGE FORM, AS NECESSARY
     Route: 048
     Dates: start: 20181222

REACTIONS (2)
  - Drug use disorder [Not Recovered/Not Resolved]
  - Condition aggravated [Not Recovered/Not Resolved]

NARRATIVE: CASE EVENT DATE: 20181001
